FAERS Safety Report 8970879 (Version 1)
Quarter: 2012Q4

REPORT INFORMATION
  Report Type: 
  Country: US (occurrence: US)
  Receive Date: 20121218
  Receipt Date: 20121218
  Transmission Date: 20130627
  Serious: No
  Sender: FDA-Public Use
  Company Number: US-VERTEX PHARMACEUTICALS INC.-2012-025996

PATIENT
  Sex: Male
  Weight: 91 kg

DRUGS (3)
  1. INCIVEK [Suspect]
     Indication: HEPATITIS C
     Dosage: UNK
     Route: 048
     Dates: start: 201107, end: 2011
  2. RIBAVIRIN [Suspect]
     Indication: HEPATITIS C
     Dosage: UNK
     Dates: start: 201107, end: 201112
  3. UNKNOWN DRUG [Suspect]
     Indication: HEPATITIS C
     Dosage: UNK
     Dates: start: 201107, end: 201112

REACTIONS (1)
  - No therapeutic response [Not Recovered/Not Resolved]
